FAERS Safety Report 5442913-8 (Version None)
Quarter: 2007Q3

REPORT INFORMATION
  Report Type: 
  Country: None (occurrence: None)
  Receive Date: 20070830
  Receipt Date: 20070817
  Transmission Date: 20080115
  Serious: Yes (Other)
  Sender: FDA-Public Use
  Company Number: DSA_30479_2007

PATIENT
  Age: 39 Year
  Sex: Female

DRUGS (2)
  1. ENALAPRIL MALEATE W/ HYDROCHLOROTHIAZIDE (ENALAPRIL MALEATE -HCTZ) (BI [Suspect]
     Indication: ESSENTIAL HYPERTENSION
     Dosage: DF ORAL
     Route: 048
     Dates: start: 20050101, end: 20060115
  2. NORVASC [Suspect]
     Indication: ESSENTIAL HYPERTENSION
     Dosage: DF ORAL
     Route: 048
     Dates: start: 20060115

REACTIONS (4)
  - COMPLICATION OF DELIVERY [None]
  - DRUG EXPOSURE DURING PREGNANCY [None]
  - FOETAL GROWTH RETARDATION [None]
  - OLIGOHYDRAMNIOS [None]
